FAERS Safety Report 7960158-4 (Version None)
Quarter: 2011Q4

REPORT INFORMATION
  Report Type: 
  Country: None (occurrence: None)
  Receive Date: 20111201
  Receipt Date: 20111115
  Transmission Date: 20120403
  Serious: Yes (Death)
  Sender: FDA-Public Use
  Company Number: 2009-058

PATIENT
  Age: 91 Year
  Sex: Female

DRUGS (11)
  1. CATAPRES [Concomitant]
  2. MIRALAX [Concomitant]
  3. FAZACLO ODT [Suspect]
     Indication: BIPOLAR I DISORDER
     Dosage: 100 MG, QD, ORAL
     Route: 048
     Dates: start: 20060509, end: 20090219
  4. FIBER-LAX (POLYCARBOPHIL CALCIUM) [Concomitant]
  5. PRILOSEC [Concomitant]
  6. TUMS (CALCIUM CARBONATE, MAGNESIUM CARBONATE, MAGNESIUM TRISILICATE) [Concomitant]
  7. DULCOLAX [Concomitant]
  8. MORPHINE [Concomitant]
  9. NORVASC [Concomitant]
  10. FOLIC ACID [Concomitant]
  11. EXTRA STRENGTH TYLENOL [Concomitant]

REACTIONS (2)
  - CACHEXIA [None]
  - FAILURE TO THRIVE [None]
